FAERS Safety Report 24911867 (Version 1)
Quarter: 2025Q1

REPORT INFORMATION
  Report Type: Spontaneous
  Country: MY (occurrence: MY)
  Receive Date: 20250131
  Receipt Date: 20250131
  Transmission Date: 20250408
  Serious: Yes (Hospitalization, Other)
  Sender: RANBAXY
  Company Number: MY-SUN PHARMACEUTICAL INDUSTRIES LTD-2025R1-491628

PATIENT
  Sex: Male

DRUGS (3)
  1. TOPIRAMATE [Suspect]
     Active Substance: TOPIRAMATE
     Indication: Lennox-Gastaut syndrome
     Route: 065
  2. CLOBAZAM [Suspect]
     Active Substance: CLOBAZAM
     Indication: Lennox-Gastaut syndrome
     Route: 065
  3. PHENYTOIN [Suspect]
     Active Substance: PHENYTOIN
     Indication: Lennox-Gastaut syndrome
     Route: 065

REACTIONS (2)
  - Drug ineffective [Unknown]
  - Drug resistance [Unknown]
